FAERS Safety Report 4968080-2 (Version None)
Quarter: 2006Q2

REPORT INFORMATION
  Report Type: 
  Country: None (occurrence: None)
  Receive Date: 20060410
  Receipt Date: 20060331
  Transmission Date: 20061013
  Serious: Yes (Death)
  Sender: FDA-Public Use
  Company Number: ES-ROCHE-442909

PATIENT
  Age: 78 Year
  Sex: Female
  Weight: 120 kg

DRUGS (3)
  1. ANTALGIN [Suspect]
     Route: 048
     Dates: start: 20040615, end: 20050309
  2. ACECLOFENAC [Suspect]
     Route: 048
     Dates: start: 20040615, end: 20050309
  3. CAPOTEN [Suspect]
     Route: 048
     Dates: start: 20050309, end: 20050320

REACTIONS (2)
  - HYPERTENSION [None]
  - RENAL FAILURE ACUTE [None]
